FAERS Safety Report 20736157 (Version 2)
Quarter: 2022Q2

REPORT INFORMATION
  Report Type: Spontaneous
  Country: US (occurrence: US)
  Receive Date: 20220421
  Receipt Date: 20220422
  Transmission Date: 20220721
  Serious: Yes (Other)
  Sender: FDA-Public Use
  Company Number: US-INTRA-CELLULAR THERAPIES, INC.-2022ICT00337

PATIENT

DRUGS (1)
  1. CAPLYTA [Suspect]
     Active Substance: LUMATEPERONE

REACTIONS (2)
  - Hallucination [Unknown]
  - Therapeutic response decreased [Unknown]
